FAERS Safety Report 23647138 (Version 1)
Quarter: 2024Q1

REPORT INFORMATION
  Report Type: Spontaneous
  Country: US (occurrence: None)
  Receive Date: 20240318
  Receipt Date: 20240318
  Transmission Date: 20240409
  Serious: Yes (Other)
  Sender: FDA-Public Use
  Company Number: None

PATIENT
  Age: 80 Year
  Sex: Male
  Weight: 92.25 kg

DRUGS (13)
  1. MINOCIN [Suspect]
     Active Substance: MINOCYCLINE HYDROCHLORIDE
     Indication: Rosacea
     Dosage: 1 TABLET TWICE A DAY ORAL?
     Route: 048
     Dates: start: 20180101
  2. CLOPIDOGREL [Concomitant]
     Active Substance: CLOPIDOGREL BISULFATE
  3. LISINOPRIL [Concomitant]
     Active Substance: LISINOPRIL
  4. ROSUVASTATIN [Concomitant]
     Active Substance: ROSUVASTATIN
  5. RESTASIS [Concomitant]
     Active Substance: CYCLOSPORINE
  6. LEVOTHYROXINE [Concomitant]
     Active Substance: LEVOTHYROXINE\LEVOTHYROXINE SODIUM
  7. selenium facial lotion [Concomitant]
  8. hydrocortisone ointment 2% [Concomitant]
  9. Selenium sulfide topical suspension 2.5 % (Lotion) Leave on 5 min befo [Concomitant]
  10. ketoconozole shampoo [Concomitant]
  11. ALBUTEROL SULFATE [Concomitant]
     Active Substance: ALBUTEROL SULFATE
  12. FISH OIL [Concomitant]
     Active Substance: FISH OIL
  13. IBUPROFEN [Concomitant]
     Active Substance: IBUPROFEN

REACTIONS (3)
  - Scleral discolouration [None]
  - Nail bed disorder [None]
  - Skin hyperpigmentation [None]

NARRATIVE: CASE EVENT DATE: 20230108
